FAERS Safety Report 4491761-4 (Version None)
Quarter: 2004Q4

REPORT INFORMATION
  Report Type: 
  Country: None (occurrence: None)
  Receive Date: 20041101
  Receipt Date: 20041019
  Transmission Date: 20050328
  Serious: Yes (Hospitalization, Disabling, Other)
  Sender: FDA-Public Use
  Company Number: 2003035058

PATIENT
  Age: 26 Year
  Sex: Male

DRUGS (7)
  1. ZITHROMAX [Suspect]
     Indication: PHARYNGOLARYNGEAL PAIN
     Dosage: 1 IN 1 D, ORAL
     Route: 048
     Dates: start: 20000711, end: 20000701
  2. ZITHROMAX [Suspect]
     Indication: PYREXIA
     Dosage: 1 IN 1 D, ORAL
     Route: 048
     Dates: start: 20000711, end: 20000701
  3. CARBAMAZEPINE [Suspect]
     Indication: AFFECTIVE DISORDER
     Dosage: 400 MG (200 MG, 2 IN 1 D), ORAL
     Route: 048
     Dates: start: 20000628, end: 20000909
  4. CARBAMAZEPINE [Suspect]
     Indication: CONVULSION
     Dosage: 400 MG (200 MG, 2 IN 1 D), ORAL
     Route: 048
     Dates: start: 20000628, end: 20000909
  5. OLANZAPINE [Suspect]
     Indication: DEPRESSION
     Dosage: 5 MG (1 IN 1 D), ORAL
     Route: 048
     Dates: start: 20000628, end: 20000909
  6. OLANZAPINE [Suspect]
     Indication: THINKING ABNORMAL
     Dosage: 5 MG (1 IN 1 D), ORAL
     Route: 048
     Dates: start: 20000628, end: 20000909
  7. VENLAFAXINE HCL [Concomitant]

REACTIONS (56)
  - ACUTE SINUSITIS [None]
  - AGGRESSION [None]
  - ALBUMIN GLOBULIN RATIO DECREASED [None]
  - ANAEMIA [None]
  - ANOREXIA [None]
  - ARTHRALGIA [None]
  - ASTHMA [None]
  - BAND NEUTROPHIL COUNT DECREASED [None]
  - BAND NEUTROPHIL COUNT INCREASED [None]
  - BLOOD ALBUMIN DECREASED [None]
  - BLOOD CALCIUM DECREASED [None]
  - BLOOD GLUCOSE INCREASED [None]
  - BLOOD SODIUM DECREASED [None]
  - CANDIDIASIS [None]
  - CELLULITIS [None]
  - CHILLS [None]
  - DEHYDRATION [None]
  - DEPRESSION [None]
  - DERMATITIS EXFOLIATIVE [None]
  - DISORIENTATION [None]
  - ECZEMA WEEPING [None]
  - EXCORIATION [None]
  - EYE PAIN [None]
  - FUNGAL INFECTION [None]
  - HEADACHE [None]
  - HERPES VIRUS INFECTION [None]
  - HYPERSENSITIVITY [None]
  - INSOMNIA [None]
  - LEUKOCYTOCLASTIC VASCULITIS [None]
  - MALAISE [None]
  - MIGRAINE [None]
  - MOOD SWINGS [None]
  - NASOPHARYNGITIS [None]
  - OEDEMA PERIPHERAL [None]
  - ONYCHOMADESIS [None]
  - OTITIS MEDIA [None]
  - PAIN [None]
  - PHARYNGOLARYNGEAL PAIN [None]
  - PHOTOSENSITIVITY REACTION [None]
  - PROTEIN TOTAL DECREASED [None]
  - PSYCHOSOMATIC DISEASE [None]
  - PURULENT DISCHARGE [None]
  - RESPIRATORY TRACT CONGESTION [None]
  - RHINITIS [None]
  - RHINITIS ALLERGIC [None]
  - SCRATCH [None]
  - SKIN TIGHTNESS [None]
  - SKIN ULCER [None]
  - STEVENS-JOHNSON SYNDROME [None]
  - SWOLLEN TONGUE [None]
  - TOXIC EPIDERMAL NECROLYSIS [None]
  - UPPER GASTROINTESTINAL HAEMORRHAGE [None]
  - URTICARIA [None]
  - VISION BLURRED [None]
  - WEIGHT DECREASED [None]
  - WHITE BLOOD CELL COUNT INCREASED [None]
